FAERS Safety Report 7368490-2 (Version None)
Quarter: 2011Q1

REPORT INFORMATION
  Report Type: 
  Country: None (occurrence: None)
  Receive Date: 20110323
  Receipt Date: 20110314
  Transmission Date: 20110831
  Serious: Yes (Death, Hospitalization)
  Sender: FDA-Public Use
  Company Number: AU-CELGENEUS-008-C5013-11022795

PATIENT
  Sex: Male
  Weight: 72 kg

DRUGS (7)
  1. PREDNISONE [Suspect]
     Indication: PROSTATE CANCER
     Dosage: 10 MILLIGRAM
     Route: 065
     Dates: start: 20101215
  2. PREDNISONE [Suspect]
     Dosage: 10 MILLIGRAM
     Route: 065
     Dates: start: 20110216, end: 20110303
  3. CC-5013\PLACEBO [Suspect]
     Dosage: 20 MILLIGRAM
     Route: 048
     Dates: start: 20110216, end: 20110228
  4. CC-5013\PLACEBO [Suspect]
     Indication: PROSTATE CANCER
     Dosage: 25 MILLIGRAM
     Route: 048
     Dates: start: 20101216
  5. ANTITHROMBOTIC AGENT [Concomitant]
     Route: 065
  6. DOCETAXEL [Suspect]
     Indication: PROSTATE CANCER
     Dosage: 148 MILLIGRAM
     Route: 065
     Dates: start: 20101215
  7. DOCETAXEL [Suspect]
     Dosage: 140 MILLIGRAM
     Route: 065
     Dates: start: 20110216, end: 20110228

REACTIONS (3)
  - WOUND INFECTION [None]
  - FEBRILE NEUTROPENIA [None]
  - SKIN EXFOLIATION [None]
